FAERS Safety Report 4597206-8 (Version None)
Quarter: 2005Q1

REPORT INFORMATION
  Report Type: 
  Country: None (occurrence: None)
  Receive Date: 20050301
  Receipt Date: 20050216
  Transmission Date: 20050727
  Serious: Yes (Hospitalization)
  Sender: FDA-Public Use
  Company Number: 2005AP01233

PATIENT
  Age: 76 Year
  Sex: Male

DRUGS (2)
  1. TENORMIN [Suspect]
     Indication: HYPERTENSION
     Dosage: 50 MG DAILY PO
     Route: 048
     Dates: start: 20020101, end: 20040816
  2. THALIDOMIDE [Suspect]
     Indication: MULTIPLE MYELOMA
     Dosage: 100 MG DAILY PO
     Route: 048
     Dates: start: 20040714

REACTIONS (3)
  - DRUG INTERACTION [None]
  - SINUS BRADYCARDIA [None]
  - SYNCOPE [None]
